FAERS Safety Report 20130781 (Version 1)
Quarter: 2021Q4

REPORT INFORMATION
  Report Type: Spontaneous
  Country: US (occurrence: US)
  Receive Date: 20211130
  Receipt Date: 20211130
  Transmission Date: 20220303
  Serious: Yes (Other)
  Sender: FDA-Public Use
  Company Number: US-ARBOR PHARMACEUTICALS, LLC-US-2021ARB001519

PATIENT
  Age: 79 Year
  Sex: Female

DRUGS (9)
  1. NIMODIPINE [Suspect]
     Active Substance: NIMODIPINE
     Indication: Subarachnoid haemorrhage
     Dosage: 60 MG, UNK
     Route: 048
  2. METOPROLOL [Concomitant]
     Active Substance: METOPROLOL
     Indication: Hypertension
     Dosage: 12.5 MG, QD
  3. PROPOFOL [Concomitant]
     Active Substance: PROPOFOL
     Indication: Sedation
     Dosage: UNK
  4. PROPOFOL [Concomitant]
     Active Substance: PROPOFOL
     Indication: Blood pressure management
     Dosage: UNK (LIGHTENED)
  5. PROPOFOL [Concomitant]
     Active Substance: PROPOFOL
     Dosage: 25 ?G/KG/MIN
  6. PROPOFOL [Concomitant]
     Active Substance: PROPOFOL
     Dosage: UNK, RESUMED
  7. NICARDIPINE [Concomitant]
     Active Substance: NICARDIPINE
     Indication: Blood pressure management
     Dosage: UNK
  8. NICARDIPINE [Concomitant]
     Active Substance: NICARDIPINE
     Dosage: 5 MG/HR
  9. NICARDIPINE [Concomitant]
     Active Substance: NICARDIPINE
     Dosage: UNK, RESUMED

REACTIONS (2)
  - Vasoplegia syndrome [Recovered/Resolved]
  - Shock [Recovered/Resolved]
